FAERS Safety Report 25637936 (Version 1)
Quarter: 2025Q3

REPORT INFORMATION
  Report Type: Report from Study
  Country: JP (occurrence: JP)
  Receive Date: 20250804
  Receipt Date: 20250804
  Transmission Date: 20251020
  Serious: Yes (Other)
  Sender: ALEXION PHARMACEUTICALS
  Company Number: JP-ASTRAZENECA-202507JPN023936JP

PATIENT
  Age: 13 Year
  Sex: Female
  Weight: 42 kg

DRUGS (2)
  1. KOSELUGO [Suspect]
     Active Substance: SELUMETINIB
     Indication: Neurofibroma
     Dosage: 60 MILLIGRAM, QD
     Route: 065
     Dates: start: 20231229, end: 20240427
  2. KOSELUGO [Suspect]
     Active Substance: SELUMETINIB
     Dosage: 70 MILLIGRAM, QD
     Route: 065
     Dates: start: 20240428

REACTIONS (2)
  - Blindness unilateral [Not Recovered/Not Resolved]
  - Dermatitis acneiform [Unknown]

NARRATIVE: CASE EVENT DATE: 20240106
